FAERS Safety Report 7468975-4 (Version None)
Quarter: 2011Q2

REPORT INFORMATION
  Report Type: 
  Country: None (occurrence: None)
  Receive Date: 20110429
  Receipt Date: 20110425
  Transmission Date: 20111010
  Serious: Yes (Death, Hospitalization)
  Sender: FDA-Public Use
  Company Number: 2011SP007546

PATIENT
  Age: 68 Year
  Sex: Male
  Weight: 63 kg

DRUGS (22)
  1. MUCOMYST [Concomitant]
  2. MEGACE [Concomitant]
  3. TYLENOL ER [Concomitant]
  4. CIPRO [Concomitant]
  5. ALBIS [Concomitant]
  6. NEURONTIN [Concomitant]
  7. AMODIPIN [Concomitant]
  8. MUTERAN [Concomitant]
  9. GLIATILIN [Concomitant]
  10. LEXAPRO [Concomitant]
  11. URSA [Concomitant]
  12. MAGNESIUM OXIDE [Concomitant]
  13. BROMHEXINE [Concomitant]
  14. PK-MERZ [Concomitant]
  15. TEMOZOLOMIDE [Suspect]
     Indication: GLIOBLASTOMA MULTIFORME
     Dosage: 120 MG; PO
     Route: 048
     Dates: start: 20081215, end: 20091218
  16. ZOFRAN [Concomitant]
  17. NOVOMIX [Concomitant]
  18. GASMOTIN [Concomitant]
  19. TOPAMAX [Concomitant]
  20. ULCERMIN [Concomitant]
  21. LEVOTUSS [Concomitant]
  22. PONTAL [Concomitant]

REACTIONS (2)
  - OXYGEN SATURATION DECREASED [None]
  - PNEUMONIA [None]
